FAERS Safety Report 6819460-1 (Version None)
Quarter: 2010Q3

REPORT INFORMATION
  Report Type: 
  Country: None (occurrence: None)
  Receive Date: 20100707
  Receipt Date: 20100625
  Transmission Date: 20110219
  Serious: Yes (Other)
  Sender: FDA-Public Use
  Company Number: CA-PFIZER INC-2009247601

PATIENT
  Sex: Female

DRUGS (2)
  1. DETROL LA [Suspect]
     Indication: HYPERTONIC BLADDER
     Dosage: 4 MG, UNK
     Route: 048
  2. SYNTHROID [Suspect]
     Indication: THYROID DISORDER

REACTIONS (2)
  - HYPERSENSITIVITY [None]
  - HYPERTONIC BLADDER [None]
